FAERS Safety Report 5773258-4 (Version None)
Quarter: 2008Q2

REPORT INFORMATION
  Report Type: 
  Country: None (occurrence: None)
  Receive Date: 20080612
  Receipt Date: 20080612
  Transmission Date: 20081010
  Serious: Yes (Life-Threatening)
  Sender: FDA-Public Use
  Company Number: None

PATIENT
  Age: 25 Year
  Sex: Male
  Weight: 96.8 kg

DRUGS (1)
  1. INFLIXIMAB  100MG VIALS  CENTOCOR [Suspect]
     Indication: INFLAMMATORY BOWEL DISEASE
     Dosage: 1000 MG  EVERY 8 WEEKS  IV DRIP
     Route: 041
     Dates: start: 20011015, end: 20080327

REACTIONS (5)
  - BACK PAIN [None]
  - BONE DISORDER [None]
  - LYMPHOMA [None]
  - PLEURAL EFFUSION [None]
  - SPINAL DISORDER [None]
